FAERS Safety Report 5946172-9 (Version None)
Quarter: 2008Q4

REPORT INFORMATION
  Report Type: 
  Country: None (occurrence: None)
  Receive Date: 20081106
  Receipt Date: 20081023
  Transmission Date: 20090506
  Serious: Yes (Other)
  Sender: FDA-Public Use
  Company Number: 2008S1018252

PATIENT
  Age: 75 Year
  Sex: Female

DRUGS (5)
  1. CIPROFLOXACIN [Suspect]
     Indication: INFECTION
  2. LINEZOLID [Suspect]
     Indication: INFECTION
  3. MEROPENEM (MEROPENEM) [Suspect]
     Indication: INFECTION
  4. PRISTINAMYCIN (PRISTINAMYCIN) [Suspect]
     Indication: INFECTION
  5. VANCOMYCIN [Suspect]
     Indication: INFECTION

REACTIONS (4)
  - DISEASE PROGRESSION [None]
  - DRUG RESISTANCE [None]
  - INFECTION [None]
  - SURGERY [None]
